FAERS Safety Report 9500368 (Version 1)
Quarter: 2013Q3

REPORT INFORMATION
  Report Type: Spontaneous
  Country: US (occurrence: None)
  Receive Date: 20130904
  Receipt Date: 20130904
  Transmission Date: 20140515
  Serious: Yes (Disabling, Other)
  Sender: FDA-Public Use
  Company Number: None

PATIENT
  Age: 36 Year
  Sex: Female
  Weight: 58.97 kg

DRUGS (1)
  1. OXYCODONE [Suspect]
     Indication: ABSCESS DRAINAGE
     Dosage: 1-2 TABLETS FOUR TIMES DAILY TAKEN BY MOUTH
     Route: 048
     Dates: start: 20130808, end: 20130818

REACTIONS (5)
  - Restlessness [None]
  - Mania [None]
  - Tremor [None]
  - Insomnia [None]
  - Feeling abnormal [None]
